FAERS Safety Report 14677097 (Version 1)
Quarter: 2018Q1

REPORT INFORMATION
  Report Type: Spontaneous
  Country: US (occurrence: US)
  Receive Date: 20180323
  Receipt Date: 20180323
  Transmission Date: 20180509
  Serious: Yes (Hospitalization)
  Sender: FDA-Public Use
  Company Number: None

PATIENT
  Age: 65 Year
  Sex: Male
  Weight: 105.23 kg

DRUGS (18)
  1. DEXAMETHASONE. [Suspect]
     Active Substance: DEXAMETHASONE
     Dates: end: 20171228
  2. CYCLOPHOSPHAMIDE. [Suspect]
     Active Substance: CYCLOPHOSPHAMIDE
     Dates: end: 20180227
  3. DOCUSATE [Concomitant]
     Active Substance: DOCUSATE
  4. CYTARABINE. [Suspect]
     Active Substance: CYTARABINE
     Dates: end: 20180302
  5. MERCAPTOPURINE. [Suspect]
     Active Substance: MERCAPTOPURINE
     Dates: end: 20180302
  6. METHOTREXATE. [Suspect]
     Active Substance: METHOTREXATE
     Dates: end: 20180227
  7. DAUNORUBICIN [Suspect]
     Active Substance: DAUNORUBICIN
     Dates: end: 20180112
  8. VINCRISTINE SULFATE. [Suspect]
     Active Substance: VINCRISTINE SULFATE
     Dates: end: 20180112
  9. OXYCODONE [Concomitant]
     Active Substance: OXYCODONE
  10. PANTOPRAZOLE [Concomitant]
     Active Substance: PANTOPRAZOLE
  11. POLYTHYLENE GLYCOL PACK [Concomitant]
  12. PROCHLORPERAZINE. [Concomitant]
     Active Substance: PROCHLORPERAZINE
  13. SULFAMETHOXAZOLE-TRIMETHOPRIM [Concomitant]
     Active Substance: SULFAMETHOXAZOLE\TRIMETHOPRIM
  14. ACYCLOVIR. [Concomitant]
     Active Substance: ACYCLOVIR
  15. METOPROLOL. [Concomitant]
     Active Substance: METOPROLOL
  16. FLUCONAZOLE. [Concomitant]
     Active Substance: FLUCONAZOLE
  17. SACUBITRIL-VALSARTAN [Concomitant]
     Active Substance: SACUBITRIL\VALSARTAN
  18. SOTALOL. [Concomitant]
     Active Substance: SOTALOL

REACTIONS (3)
  - Infection [None]
  - Skin mass [None]
  - Febrile neutropenia [None]

NARRATIVE: CASE EVENT DATE: 20180303
